FAERS Safety Report 5221547-4 (Version None)
Quarter: 2007Q1

REPORT INFORMATION
  Report Type: 
  Country: None (occurrence: None)
  Receive Date: 20070127
  Receipt Date: 20070117
  Transmission Date: 20070707
  Serious: Yes (Death, Hospitalization)
  Sender: FDA-Public Use
  Company Number: BR-ABBOTT-06P-020-0336902-00

PATIENT
  Age: 70 Year
  Sex: Female

DRUGS (3)
  1. HUMIRA [Suspect]
     Indication: RHEUMATOID ARTHRITIS
     Route: 058
     Dates: start: 20051101
  2. CORTICOIDS [Concomitant]
     Indication: RHEUMATOID ARTHRITIS
  3. UNSPECIFIED MEDICATION [Concomitant]
     Indication: HYPERTENSION

REACTIONS (4)
  - DRUG INEFFECTIVE [None]
  - FALL [None]
  - FRACTURE [None]
  - RHEUMATOID ARTHRITIS [None]
